FAERS Safety Report 7397508-6 (Version None)
Quarter: 2011Q2

REPORT INFORMATION
  Report Type: 
  Country: None (occurrence: None)
  Receive Date: 20110406
  Receipt Date: 20110401
  Transmission Date: 20111010
  Serious: Yes (Death)
  Sender: FDA-Public Use
  Company Number: IN-PFIZER INC-2011073279

PATIENT
  Age: 51 Year
  Sex: Male

DRUGS (2)
  1. FOLVITE [Concomitant]
     Dosage: 5 MG, 1X/DAY
  2. SUTENT [Suspect]
     Indication: GASTROINTESTINAL STROMAL TUMOUR
     Dosage: 37.5 MG, 1X/DAY
     Route: 048

REACTIONS (1)
  - DEATH [None]
